FAERS Safety Report 9716196 (Version 1)
Quarter: 2013Q4

REPORT INFORMATION
  Report Type: Spontaneous
  Country: SE (occurrence: SE)
  Receive Date: 20131127
  Receipt Date: 20131127
  Transmission Date: 20140711
  Serious: Yes (Other)
  Sender: FDA-Public Use
  Company Number: SE-ASTELLAS-2013EU010239

PATIENT
  Sex: Female

DRUGS (1)
  1. BETMIGA [Suspect]
     Indication: URGE INCONTINENCE
     Dosage: 50 MG, UID/QD
     Route: 048
     Dates: start: 20131106

REACTIONS (5)
  - Presyncope [Recovered/Resolved]
  - Nausea [Recovered/Resolved]
  - General physical health deterioration [Recovered/Resolved]
  - Fatigue [Recovered/Resolved]
  - Vomiting [Recovered/Resolved]
